FAERS Safety Report 22656158 (Version 1)
Quarter: 2023Q2

REPORT INFORMATION
  Report Type: Spontaneous
  Country: AT (occurrence: AT)
  Receive Date: 20230629
  Receipt Date: 20230629
  Transmission Date: 20230722
  Serious: Yes (Life-Threatening, Other)
  Sender: FDA-Public Use
  Company Number: AT-GILEAD-2023-0634433

PATIENT
  Age: 66 Year
  Sex: Female
  Weight: 60 kg

DRUGS (1)
  1. YESCARTA [Suspect]
     Active Substance: AXICABTAGENE CILOLEUCEL
     Indication: Diffuse large B-cell lymphoma
     Dosage: UNK
     Route: 042
     Dates: start: 20230619, end: 20230619

REACTIONS (1)
  - Immune effector cell-associated neurotoxicity syndrome [Not Recovered/Not Resolved]

NARRATIVE: CASE EVENT DATE: 20230620
